FAERS Safety Report 7047415-3 (Version None)
Quarter: 2010Q4

REPORT INFORMATION
  Report Type: 
  Country: None (occurrence: None)
  Receive Date: 20101015
  Receipt Date: 20101011
  Transmission Date: 20110411
  Serious: Yes (Hospitalization)
  Sender: FDA-Public Use
  Company Number: NL-ROCHE-732718

PATIENT
  Sex: Female

DRUGS (5)
  1. TRASTUZUMAB [Suspect]
     Indication: BREAST CANCER
     Route: 065
     Dates: start: 20100604
  2. BLINDED CANDESARTAN [Suspect]
     Indication: BREAST CANCER
     Dosage: LAST DOSE PRIOR TO SAE ON 10 JUNE 2010.
     Route: 048
     Dates: start: 20100604, end: 20100610
  3. BLINDED CANDESARTAN [Suspect]
     Dosage: FREQUENCY REPORTED: TD
     Route: 048
     Dates: start: 20100611
  4. ACETYLSALICYLZUUR [Concomitant]
     Dosage: PRE-STUDY.
  5. DIPIRIDAMOL [Concomitant]
     Dates: start: 20100914

REACTIONS (1)
  - CEREBROVASCULAR ACCIDENT [None]
